FAERS Safety Report 8177276-0 (Version None)
Quarter: 2012Q1

REPORT INFORMATION
  Report Type: 
  Country: None (occurrence: None)
  Receive Date: 20120124
  Receipt Date: 20111102
  Transmission Date: 20120608
  Serious: No
  Sender: FDA-Public Use
  Company Number: US-006739

PATIENT
  Age: 68 Year
  Sex: Male
  Weight: 124.7392 kg

DRUGS (13)
  1. LINUM USITATISSIMUM [Concomitant]
  2. LISINOPRIL [Concomitant]
  3. ALLOPURINOL [Concomitant]
  4. ASPIRIN [Concomitant]
  5. CASODEX [Concomitant]
  6. DAILY MULTIVITAMIN [Concomitant]
  7. DEGARELIX (240 MG, 80 MG, 80 MG) [Suspect]
     Indication: PROSTATE CANCER
     Dosage: (240 MG 1X SUBCUTANEOUS), (80 MG 1X/MONTH SUBCUTANEOUS), (80 MG 1X/MONTH SUBCUTANEOUS)
     Route: 058
     Dates: start: 20110622, end: 20110720
  8. DEGARELIX (240 MG, 80 MG, 80 MG) [Suspect]
     Indication: PROSTATE CANCER
     Dosage: (240 MG 1X SUBCUTANEOUS), (80 MG 1X/MONTH SUBCUTANEOUS), (80 MG 1X/MONTH SUBCUTANEOUS)
     Route: 058
     Dates: start: 20110720, end: 20110720
  9. DEGARELIX (240 MG, 80 MG, 80 MG) [Suspect]
     Indication: PROSTATE CANCER
     Dosage: (240 MG 1X SUBCUTANEOUS), (80 MG 1X/MONTH SUBCUTANEOUS), (80 MG 1X/MONTH SUBCUTANEOUS)
     Route: 058
     Dates: start: 20110524, end: 20110524
  10. ATENOLOL [Concomitant]
  11. SIMVASTATIN [Concomitant]
  12. DITROPAN [Concomitant]
  13. GLYBURIDE [Concomitant]

REACTIONS (1)
  - PROSTATIC SPECIFIC ANTIGEN INCREASED [None]
